FAERS Safety Report 19210686 (Version 4)
Quarter: 2021Q3

REPORT INFORMATION
  Report Type: Report from Study
  Country: US (occurrence: US)
  Receive Date: 20210504
  Receipt Date: 20210908
  Transmission Date: 20211014
  Serious: No
  Sender: FDA-Public Use
  Company Number: NVSC2021US097110

PATIENT
  Sex: Female
  Weight: 63.49 kg

DRUGS (2)
  1. TREPROSTINIL. [Suspect]
     Active Substance: TREPROSTINIL
     Indication: PULMONARY ARTERIAL HYPERTENSION
     Dosage: 70 NG/KG/MIN, CONT
     Route: 042
     Dates: start: 20210325
  2. LETAIRIS [Concomitant]
     Active Substance: AMBRISENTAN
     Indication: PRODUCT USED FOR UNKNOWN INDICATION
     Route: 065

REACTIONS (7)
  - Feeling abnormal [Unknown]
  - Product leakage [Unknown]
  - Chest pain [Unknown]
  - Device issue [Unknown]
  - Palpitations [Unknown]
  - Gait disturbance [Unknown]
  - Dyspnoea [Unknown]
